FAERS Safety Report 21919210 (Version 1)
Quarter: 2023Q1

REPORT INFORMATION
  Report Type: Spontaneous
  Country: US (occurrence: US)
  Receive Date: 20230127
  Receipt Date: 20230127
  Transmission Date: 20230418
  Serious: No
  Sender: FDA-Public Use
  Company Number: US-GSK-US2023007997

PATIENT
  Age: 73 Year
  Sex: Female

DRUGS (1)
  1. NUCALA [Suspect]
     Active Substance: MEPOLIZUMAB
     Indication: Product used for unknown indication
     Dosage: UNK

REACTIONS (6)
  - Chronic obstructive pulmonary disease [Unknown]
  - Illness [Not Recovered/Not Resolved]
  - Dyspnoea [Unknown]
  - Productive cough [Unknown]
  - Oxygen saturation decreased [Unknown]
  - Sputum retention [Unknown]

NARRATIVE: CASE EVENT DATE: 20230119
